FAERS Safety Report 8163794-8 (Version None)
Quarter: 2012Q1

REPORT INFORMATION
  Report Type: 
  Country: None (occurrence: None)
  Receive Date: 20120224
  Receipt Date: 20120220
  Transmission Date: 20120608
  Serious: Yes (Death)
  Sender: FDA-Public Use
  Company Number: PHEH2012US004368

PATIENT
  Sex: Male

DRUGS (1)
  1. GLEEVEC [Suspect]
     Indication: MALIGNANT SOFT TISSUE NEOPLASM
     Dosage: 400 MG, DAILY
     Route: 048
     Dates: start: 20120120, end: 20120201

REACTIONS (4)
  - RASH MACULO-PAPULAR [None]
  - SWELLING [None]
  - DEATH [None]
  - HEART RATE INCREASED [None]
